FAERS Safety Report 16959713 (Version 2)
Quarter: 2020Q1

REPORT INFORMATION
  Report Type: Spontaneous
  Country: US (occurrence: US)
  Receive Date: 20191025
  Receipt Date: 20200107
  Transmission Date: 20200409
  Serious: Yes (Other)
  Sender: FDA-Public Use
  Company Number: US-BRISTOL-MYERS SQUIBB COMPANY-BMS-2019-102788

PATIENT
  Sex: Female

DRUGS (1)
  1. ELIQUIS [Suspect]
     Active Substance: APIXABAN
     Indication: CARDIAC FAILURE CONGESTIVE
     Dosage: 2.5 MILLIGRAM, BID
     Route: 048

REACTIONS (3)
  - Macular degeneration [Unknown]
  - Hypoacusis [Unknown]
  - Intentional product use issue [Unknown]
